FAERS Safety Report 4730884-9 (Version None)
Quarter: 2005Q3

REPORT INFORMATION
  Report Type: 
  Country: None (occurrence: None)
  Receive Date: 20050728
  Receipt Date: 20050516
  Transmission Date: 20060218
  Serious: Yes (Hospitalization)
  Sender: FDA-Public Use
  Company Number: ZICO001140

PATIENT
  Age: 62 Year
  Sex: Male
  Weight: 99.7913 kg

DRUGS (7)
  1. PRIALT [Suspect]
     Indication: PAIN
     Dosage: 0.40 MCG/HR INTRATHECAL
     Route: 037
     Dates: start: 20040827, end: 20041207
  2. BENADRYL [Suspect]
  3. METHADONE (METHADONE) [Concomitant]
  4. NEURONTIN [Concomitant]
  5. BACLOFEN [Concomitant]
  6. DETROL [Concomitant]
  7. FENTANYL (FENTANYL PATCH) [Concomitant]

REACTIONS (3)
  - DISORIENTATION [None]
  - MENTAL IMPAIRMENT [None]
  - SOMNOLENCE [None]
